FAERS Safety Report 11871481 (Version 1)
Quarter: 2015Q4

REPORT INFORMATION
  Report Type: Spontaneous
  Country: US (occurrence: US)
  Receive Date: 20151228
  Receipt Date: 20151228
  Transmission Date: 20160305
  Serious: Yes (Hospitalization)
  Sender: FDA-Public Use
  Company Number: US-PFIZER INC-2015459879

PATIENT
  Age: 64 Year
  Sex: Male
  Weight: 151.95 kg

DRUGS (1)
  1. SUTENT [Suspect]
     Active Substance: SUNITINIB MALATE
     Indication: RENAL CELL CARCINOMA
     Dosage: 50 MG, CYCLIC (50MG CAPSULE, ONE CAPSULE DAILY FOR A WEEK THEN OFF FOR TWO WEEKS CYCLES)
     Dates: start: 201510, end: 20151123

REACTIONS (3)
  - Testicular abscess [Recovered/Resolved]
  - Groin abscess [Recovered/Resolved]
  - Rectal abscess [Recovered/Resolved]

NARRATIVE: CASE EVENT DATE: 201510
